FAERS Safety Report 5852279-7 (Version None)
Quarter: 2008Q3

REPORT INFORMATION
  Report Type: 
  Country: None (occurrence: None)
  Receive Date: 20080820
  Receipt Date: 20080820
  Transmission Date: 20090109
  Serious: No
  Sender: FDA-Public Use
  Company Number: None

PATIENT
  Age: 18 Year
  Sex: Male

DRUGS (1)
  1. OXYCODONE HCL [Suspect]
     Dosage: SOLUTION, CONCENTRATE

REACTIONS (9)
  - CEREBRAL DISORDER [None]
  - COLLAPSE OF LUNG [None]
  - COMA [None]
  - DRUG DISPENSING ERROR [None]
  - INCORRECT DOSE ADMINISTERED [None]
  - MEDICATION ERROR [None]
  - MENTAL DISORDER [None]
  - MULTI-ORGAN FAILURE [None]
  - WRONG TECHNIQUE IN DRUG USAGE PROCESS [None]
